FAERS Safety Report 23833390 (Version 1)
Quarter: 2024Q2

REPORT INFORMATION
  Report Type: Spontaneous
  Country: US (occurrence: US)
  Receive Date: 20240508
  Receipt Date: 20240508
  Transmission Date: 20240716
  Serious: No
  Sender: FDA-Public Use
  Company Number: US-BAUSCHBL-2024BNL026503

PATIENT
  Age: 91 Year
  Sex: Female

DRUGS (3)
  1. XIIDRA [Suspect]
     Active Substance: LIFITEGRAST
     Indication: Dry eye
     Dosage: APPROXIMATELY 3 YEARS AGO
     Route: 047
     Dates: end: 202404
  2. XIIDRA [Suspect]
     Active Substance: LIFITEGRAST
     Route: 047
     Dates: start: 202404
  3. UNSPECIFIED INGREDIENT [Suspect]
     Active Substance: UNSPECIFIED INGREDIENT
     Indication: Product used for unknown indication
     Route: 065

REACTIONS (5)
  - Erythema [Not Recovered/Not Resolved]
  - Discomfort [Not Recovered/Not Resolved]
  - Eye pain [Not Recovered/Not Resolved]
  - Photosensitivity reaction [Unknown]
  - Eye irritation [Not Recovered/Not Resolved]
